FAERS Safety Report 7040462-7 (Version None)
Quarter: 2010Q4

REPORT INFORMATION
  Report Type: 
  Country: None (occurrence: None)
  Receive Date: 20101008
  Receipt Date: 20101008
  Transmission Date: 20110411
  Serious: No
  Sender: FDA-Public Use
  Company Number: None

PATIENT
  Sex: Female
  Weight: 45.3597 kg

DRUGS (1)
  1. IMIQUIMOD [Suspect]
     Indication: NEOPLASM MALIGNANT
     Dosage: TUBE ON SCALP 3 TIMES WK.

REACTIONS (7)
  - ANXIETY [None]
  - BACK PAIN [None]
  - FEELING ABNORMAL [None]
  - HEPATIC PAIN [None]
  - INFLUENZA LIKE ILLNESS [None]
  - PAIN [None]
  - PYREXIA [None]
